FAERS Safety Report 18956867 (Version 1)
Quarter: 2021Q1

REPORT INFORMATION
  Report Type: Spontaneous
  Country: US (occurrence: US)
  Receive Date: 20210302
  Receipt Date: 20210302
  Transmission Date: 20210420
  Serious: Yes (Other)
  Sender: FDA-Public Use
  Company Number: US-SUN PHARMACEUTICAL INDUSTRIES LTD-2021R1-282698

PATIENT

DRUGS (5)
  1. BACLOFEN. [Suspect]
     Active Substance: BACLOFEN
     Dosage: 0.125 MG/KG/DOSE DAILY ON DAYS 11?13 OF LIFE
     Route: 015
  2. BACLOFEN. [Suspect]
     Active Substance: BACLOFEN
     Indication: MUSCLE SPASTICITY
     Dosage: UNK
     Route: 064
  3. BACLOFEN. [Suspect]
     Active Substance: BACLOFEN
     Dosage: 0.125 MG/KG/DOSE EVERY EIGHT HOURS ON DAYS 5?7 OF LIFE
     Route: 015
  4. BACLOFEN. [Suspect]
     Active Substance: BACLOFEN
     Dosage: 0.125 MG/KG/DOSE EVERY 6 HOURS BEGINNING SEVERAL HOURS AFTER BIRTH
     Route: 015
  5. BACLOFEN. [Suspect]
     Active Substance: BACLOFEN
     Dosage: 0.125 MG/KG/DOSE EVERY TWELVEHOURS ON DAYS 8?10 OF LIFE
     Route: 015

REACTIONS (4)
  - Drug withdrawal syndrome neonatal [Unknown]
  - Premature baby [Unknown]
  - Foetal exposure during pregnancy [Unknown]
  - Posturing [Unknown]
